FAERS Safety Report 7420431-5 (Version None)
Quarter: 2011Q2

REPORT INFORMATION
  Report Type: 
  Country: None (occurrence: None)
  Receive Date: 20110418
  Receipt Date: 20110412
  Transmission Date: 20111010
  Serious: No
  Sender: FDA-Public Use
  Company Number: US-PFIZER INC-2011080751

PATIENT
  Sex: Female

DRUGS (2)
  1. VIBRA-TABS [Suspect]
     Dosage: UNK
     Route: 048
  2. VIBRAMYCIN [Suspect]
     Dosage: UNK

REACTIONS (2)
  - SKIN DISORDER [None]
  - ILL-DEFINED DISORDER [None]
